FAERS Safety Report 11947255 (Version 1)
Quarter: 2016Q1

REPORT INFORMATION
  Report Type: Spontaneous
  Country: US (occurrence: US)
  Receive Date: 20160125
  Receipt Date: 20160125
  Transmission Date: 20160526
  Serious: No
  Sender: FDA-Public Use
  Company Number: US-JNJFOC-20151125352

PATIENT
  Age: 65 Year
  Sex: Female
  Weight: 48.54 kg

DRUGS (2)
  1. MENS ROGAINE EXTRA STRENGTH [Suspect]
     Active Substance: MINOXIDIL
     Route: 061
  2. MENS ROGAINE EXTRA STRENGTH [Suspect]
     Active Substance: MINOXIDIL
     Indication: ALOPECIA
     Route: 061

REACTIONS (6)
  - Dry skin [Unknown]
  - Product formulation issue [Unknown]
  - Drug prescribing error [Unknown]
  - Skin irritation [Unknown]
  - Off label use [Unknown]
  - Alopecia [Unknown]
